FAERS Safety Report 24747831 (Version 1)
Quarter: 2024Q4

REPORT INFORMATION
  Report Type: Spontaneous
  Country: US (occurrence: None)
  Receive Date: 20241218
  Receipt Date: 20241218
  Transmission Date: 20250114
  Serious: Yes (Hospitalization)
  Sender: Public
  Company Number: None

PATIENT
  Sex: Male

DRUGS (11)
  1. TERIPARATIDE [Suspect]
     Active Substance: TERIPARATIDE
     Indication: Osteoporosis
     Dosage: FREQUENCY : DAILY;?
     Route: 058
  2. ALBUTEROL SULFATE [Concomitant]
     Active Substance: ALBUTEROL SULFATE
  3. ALPHA BETIC [Concomitant]
  4. CALCIUM CIT/TAB VIT D [Concomitant]
  5. CLARITIN-D TAB [Concomitant]
  6. EFFEXOR XR [Concomitant]
     Active Substance: VENLAFAXINE HYDROCHLORIDE
  7. FISH OIL CON CAP [Concomitant]
  8. FORTEO [Concomitant]
     Active Substance: TERIPARATIDE
  9. L-METHYLFOLA TAB [Concomitant]
  10. LYRICA [Concomitant]
     Active Substance: PREGABALIN
  11. NEURONTIN [Concomitant]
     Active Substance: GABAPENTIN

REACTIONS (2)
  - Hyponatraemia [None]
  - Anaemia [None]
